FAERS Safety Report 6006655-2 (Version None)
Quarter: 2008Q4

REPORT INFORMATION
  Report Type: 
  Country: None (occurrence: None)
  Receive Date: 20081215
  Receipt Date: 20081204
  Transmission Date: 20090506
  Serious: Yes (Hospitalization)
  Sender: FDA-Public Use
  Company Number: 1-17036664

PATIENT
  Age: 40 Year
  Sex: Female

DRUGS (2)
  1. TRAZODONE HCL [Suspect]
     Indication: GENERALISED ANXIETY DISORDER
     Dosage: 50 MG, DAILY; ORAL
     Route: 048
  2. MIRTAZAPINE [Concomitant]

REACTIONS (11)
  - DEPRESSION [None]
  - DRY MOUTH [None]
  - DYSARTHRIA [None]
  - DYSKINESIA [None]
  - DYSTONIA [None]
  - EMOTIONAL DISTRESS [None]
  - HYPOAESTHESIA ORAL [None]
  - IMPAIRED WORK ABILITY [None]
  - SENSORY DISTURBANCE [None]
  - SPEECH DISORDER [None]
  - TOOTHACHE [None]
